FAERS Safety Report 19695825 (Version 1)
Quarter: 2021Q3

REPORT INFORMATION
  Report Type: Spontaneous
  Country: US (occurrence: US)
  Receive Date: 20210813
  Receipt Date: 20210813
  Transmission Date: 20211014
  Serious: No
  Sender: FDA-Public Use
  Company Number: US-ACCORD-233066

PATIENT
  Age: 77 Year
  Sex: Female
  Weight: 99.79 kg

DRUGS (3)
  1. LEVOTHYROXINE ACCORD [Suspect]
     Active Substance: LEVOTHYROXINE
     Indication: THYROID DISORDER
     Dosage: STRENGTH: 88MCG ?ONCE DAILY IN THE MORNING
     Dates: start: 20210716, end: 20210717
  2. GLIMEPIRIDE ACCORD [Concomitant]
     Active Substance: GLIMEPIRIDE
  3. HYDROCHLOROTHIAZIDE. [Concomitant]
     Active Substance: HYDROCHLOROTHIAZIDE
     Indication: HYPERTENSION
     Dosage: WATER PILL, IN THE MORNING

REACTIONS (4)
  - Product dose omission issue [Unknown]
  - Product substitution issue [Unknown]
  - Product coating issue [Unknown]
  - Product use issue [Unknown]

NARRATIVE: CASE EVENT DATE: 20210716
